FAERS Safety Report 9756547 (Version 1)
Quarter: 2013Q4

REPORT INFORMATION
  Report Type: Spontaneous
  Country: US (occurrence: US)
  Receive Date: 20131213
  Receipt Date: 20131213
  Transmission Date: 20140711
  Serious: No
  Sender: FDA-Public Use
  Company Number: US-GLAXOSMITHKLINE-A1045400A

PATIENT
  Sex: Female

DRUGS (4)
  1. WALGREENS NICOTINE TRANSDERMAL SYSTEM PATCH CLEAR, 21MG [Suspect]
     Indication: EX-TOBACCO USER
  2. WALGREENS NICOTINE TRANSDERMAL SYSTEM PATCH CLEAR, 14MG [Suspect]
     Indication: EX-TOBACCO USER
  3. WALGREENS NICOTINE TRANSDERMAL SYSTEM PATCH CLEAR, 7MG [Suspect]
     Indication: EX-TOBACCO USER
  4. WALGREENS NICOTINE TRANSDERMAL SYSTEM PATCH CLEAR, 14MG [Suspect]

REACTIONS (2)
  - Drug administration error [Unknown]
  - Product quality issue [Unknown]
